FAERS Safety Report 4336224-1 (Version None)
Quarter: 2004Q2

REPORT INFORMATION
  Report Type: 
  Country: None (occurrence: None)
  Receive Date: 20040407
  Receipt Date: 20040324
  Transmission Date: 20050107
  Serious: Yes (Other)
  Sender: FDA-Public Use
  Company Number: PERI00204000896

PATIENT
  Age: 41 Year
  Sex: Male
  Weight: 77 kg

DRUGS (1)
  1. COVERSYL (PERINDORPRIL) [Suspect]
     Indication: ILL-DEFINED DISORDER
     Dosage: 2 MG QD PO
     Route: 048
     Dates: start: 20040205, end: 20040211

REACTIONS (2)
  - MUSCLE SPASMS [None]
  - MYALGIA [None]
